FAERS Safety Report 9519290 (Version 1)
Quarter: 2013Q1

REPORT INFORMATION
  Report Type: Spontaneous
  Country: US (occurrence: None)
  Receive Date: 20130305
  Receipt Date: 20130305
  Transmission Date: 20140127
  Serious: Yes (Death, Hospitalization)
  Sender: FDA-Public Use
  Company Number: 163-21880-12062675

PATIENT
  Age: 66 Year
  Sex: Male
  Weight: 80 kg

DRUGS (10)
  1. REVLIMID (LENALIDOMIDE) (CAPSULES) [Suspect]
     Indication: MYELODYSPLASTIC SYNDROME
     Dosage: 10 MG, 1 IN 1 D, PO
     Route: 048
     Dates: start: 201205, end: 20120615
  2. COUMADIN (WARFARIN SODIUM) (UNKNOWN) [Concomitant]
  3. LISINOPRIL [Concomitant]
  4. SIMVASTATIN [Concomitant]
  5. ZOLPIDEM (ZOLPIDEM) (UNKNOWN) (ZOLPIDEM) [Concomitant]
  6. TRAMADOL (TRAMADOL) (UNKNOWN) [Concomitant]
  7. METHYLPREDNISOLONE (METHYLPRENISOLONE) (UNKNOWN)? [Concomitant]
  8. GARLIC (GARLIC) (UNKNOWN) [Concomitant]
  9. MULTIVITAMIN (MULTIVITAMINS) (UNKNOWN) [Concomitant]
  10. FISH OIL (FISH OIL) (UNKNOWN) [Concomitant]

REACTIONS (3)
  - Haemorrhagic stroke [None]
  - Chest pain [None]
  - International normalised ratio increased [None]
